FAERS Safety Report 7611997-0 (Version None)
Quarter: 2011Q3

REPORT INFORMATION
  Report Type: 
  Country: None (occurrence: None)
  Receive Date: 20110715
  Receipt Date: 20110706
  Transmission Date: 20111222
  Serious: Yes (Hospitalization)
  Sender: FDA-Public Use
  Company Number: JP-ELI_LILLY_AND_COMPANY-JP201107002520

PATIENT
  Age: 77 Year
  Sex: Male

DRUGS (3)
  1. GEMZAR [Suspect]
     Indication: BILE DUCT CANCER STAGE IV
     Dosage: UNK
     Route: 042
     Dates: start: 20060101
  2. GEMZAR [Suspect]
     Dosage: UNK
     Route: 042
     Dates: end: 20060401
  3. WARFARIN SODIUM [Concomitant]
     Indication: ATRIAL FIBRILLATION
     Dosage: UNK
     Route: 048
     Dates: start: 19860101

REACTIONS (2)
  - BONE MARROW FAILURE [None]
  - CEREBRAL INFARCTION [None]
